FAERS Safety Report 11745238 (Version 1)
Quarter: 2015Q4

REPORT INFORMATION
  Report Type: Spontaneous
  Country: US (occurrence: US)
  Receive Date: 20151117
  Receipt Date: 20151117
  Transmission Date: 20160304
  Serious: Yes (Other)
  Sender: FDA-Public Use
  Company Number: US-CIPLA LTD.-2015US08654

PATIENT

DRUGS (1)
  1. TERBINAFINE. [Suspect]
     Active Substance: TERBINAFINE
     Indication: ONYCHOMYCOSIS

REACTIONS (7)
  - Pyrexia [Recovered/Resolved]
  - Systemic lupus erythematosus [Recovering/Resolving]
  - Pericardial effusion [Recovering/Resolving]
  - Acute kidney injury [Unknown]
  - Pleural effusion [Recovering/Resolving]
  - Cardiac tamponade [Unknown]
  - Delirium [Recovering/Resolving]
